FAERS Safety Report 13131730 (Version 1)
Quarter: 2017Q1

REPORT INFORMATION
  Report Type: Report from Study
  Country: US (occurrence: US)
  Receive Date: 20170119
  Receipt Date: 20170119
  Transmission Date: 20170428
  Serious: Yes (Death, Hospitalization, Other)
  Sender: FDA-Public Use
  Company Number: US-BAYER-2016-213925

PATIENT
  Age: 63 Year
  Sex: Male
  Weight: 71.97 kg

DRUGS (6)
  1. ADEMPAS [Suspect]
     Active Substance: RIOCIGUAT
     Indication: PULMONARY HYPERTENSION
     Dosage: UNK
     Dates: start: 20151119
  2. ADEMPAS [Suspect]
     Active Substance: RIOCIGUAT
     Indication: PULMONARY HYPERTENSION
     Dosage: 0.5 MG, TID
     Route: 048
  3. VELETRI [Concomitant]
     Active Substance: EPOPROSTENOL
     Dosage: UNK
  4. AMLODIPINE [Concomitant]
     Active Substance: AMLODIPINE BESYLATE
     Dosage: UNK
  5. ADEMPAS [Suspect]
     Active Substance: RIOCIGUAT
     Indication: PULMONARY HYPERTENSION
     Dosage: 0.5 MG, TID
     Route: 048
  6. OPSUMIT [Concomitant]
     Active Substance: MACITENTAN
     Dosage: UNK

REACTIONS (11)
  - Loss of consciousness [Recovering/Resolving]
  - Hypotension [Unknown]
  - Death [Fatal]
  - Fall [Unknown]
  - Hyperammonaemia [Recovering/Resolving]
  - Syncope [Recovering/Resolving]
  - Renal failure [Unknown]
  - Depressed level of consciousness [Recovering/Resolving]
  - Hepatic cirrhosis [Unknown]
  - Haemorrhoids [Unknown]
  - Cerebral haemorrhage [None]

NARRATIVE: CASE EVENT DATE: 20161103
